FAERS Safety Report 24665392 (Version 2)
Quarter: 2024Q4

REPORT INFORMATION
  Report Type: Spontaneous
  Country: US (occurrence: US)
  Receive Date: 20241126
  Receipt Date: 20241203
  Transmission Date: 20250115
  Serious: Yes (Hospitalization, Other)
  Sender: TERSERA THERAPEUTICS
  Company Number: US-TERSERA THERAPEUTICS LLC-2024TRS005819

PATIENT

DRUGS (11)
  1. ZICONOTIDE [Suspect]
     Active Substance: ZICONOTIDE
     Indication: Small fibre neuropathy
     Dosage: 0.125 MCG, QD
     Route: 037
  2. ZICONOTIDE [Suspect]
     Active Substance: ZICONOTIDE
     Dosage: 1.5 MCG, QD
     Route: 037
  3. ZICONOTIDE [Suspect]
     Active Substance: ZICONOTIDE
     Dosage: 1.5 MCG, QD
     Route: 037
  4. ZICONOTIDE [Suspect]
     Active Substance: ZICONOTIDE
     Dosage: 0.035 MCG, QD
     Route: 037
  5. BUPIVACAINE [Concomitant]
     Active Substance: BUPIVACAINE
     Indication: Product used for unknown indication
     Dosage: 7 MILLILITER
     Route: 008
  6. FENTANYL [Concomitant]
     Active Substance: FENTANYL
     Indication: Product used for unknown indication
     Dosage: 100 MCG, EVERY 48 HOURS
     Route: 065
  7. Desvenlafaxin extended release [Concomitant]
     Indication: Product used for unknown indication
     Dosage: 50 MG, QD
     Route: 048
  8. ALPRAZOLAM [Concomitant]
     Active Substance: ALPRAZOLAM
     Indication: Product used for unknown indication
     Dosage: 2 MG
     Route: 048
  9. HYDROMORPHONE [Concomitant]
     Active Substance: HYDROMORPHONE
     Indication: Product used for unknown indication
     Dosage: 4 MG
     Route: 048
  10. OXYCODONE [Concomitant]
     Active Substance: OXYCODONE
     Indication: Pain
     Dosage: 15 MG
     Route: 065
  11. TIZANIDINE [Concomitant]
     Active Substance: TIZANIDINE
     Indication: Product used for unknown indication
     Dosage: 4 MG, Q6H (EACH 6 HR)
     Route: 048

REACTIONS (1)
  - Toxicity to various agents [Recovered/Resolved]
